FAERS Safety Report 13885488 (Version 1)
Quarter: 2017Q3

REPORT INFORMATION
  Report Type: Spontaneous
  Country: JP (occurrence: JP)
  Receive Date: 20170821
  Receipt Date: 20170821
  Transmission Date: 20171127
  Serious: Yes (Other)
  Sender: FDA-Public Use
  Company Number: JP-AKORN PHARMACEUTICALS-2017AKN00999

PATIENT
  Age: 71 Year
  Sex: Male

DRUGS (11)
  1. NIFEDIPINE. [Suspect]
     Active Substance: NIFEDIPINE
     Indication: HYPERTENSION
     Dosage: 40 MG, 2X/DAY
     Route: 065
  2. GLULISINE [Concomitant]
     Dosage: 24 U, UNK
     Route: 065
  3. VORICONAZOLE. [Suspect]
     Active Substance: VORICONAZOLE
     Indication: ENDOPHTHALMITIS
     Dosage: 600 MG, 1X/DAY
     Route: 048
  4. FEBUXOSTAT. [Concomitant]
     Active Substance: FEBUXOSTAT
     Dosage: 20 MG, UNK
     Route: 065
  5. FUROSEMIDE. [Concomitant]
     Active Substance: FUROSEMIDE
     Dosage: 40 MG, UNK
     Route: 065
  6. TRICHLORMETHIAZIDE [Concomitant]
     Active Substance: TRICHLORMETHIAZIDE
     Dosage: 1 MG, 1X/DAY
     Route: 065
  7. CLARITHROMYCIN. [Suspect]
     Active Substance: CLARITHROMYCIN
     Indication: ENDOPHTHALMITIS
     Dosage: 400 MG, 1X/DAY
     Route: 048
  8. VORICONAZOLE. [Suspect]
     Active Substance: VORICONAZOLE
     Dosage: 300 MG, 1X/DAY
     Route: 048
  9. NIFEDIPINE. [Suspect]
     Active Substance: NIFEDIPINE
     Dosage: 40 MG, UNK
     Route: 065
  10. OLMESARTAN [Concomitant]
     Active Substance: OLMESARTAN
     Dosage: 40 MG, UNK
     Route: 065
  11. GLARGINE [Concomitant]
     Dosage: 4 U, 1X/DAY
     Route: 065

REACTIONS (4)
  - Hypotension [Recovered/Resolved]
  - Potentiating drug interaction [Recovered/Resolved]
  - Acute kidney injury [Recovered/Resolved]
  - Renal ischaemia [Recovered/Resolved]
